FAERS Safety Report 21494049 (Version 1)
Quarter: 2022Q4

REPORT INFORMATION
  Report Type: Spontaneous
  Country: FR (occurrence: FR)
  Receive Date: 20221021
  Receipt Date: 20221021
  Transmission Date: 20230113
  Serious: Yes (Other)
  Sender: FDA-Public Use
  Company Number: None

PATIENT
  Age: 61 Year
  Sex: Female

DRUGS (2)
  1. PHESGO [Suspect]
     Active Substance: HYALURONIDASE-ZZXF\PERTUZUMAB\TRASTUZUMAB
     Indication: Breast cancer
     Dosage: 3RD AND 4TH TREATMENT?1200 MG/600 MG, SOLUTION INJECTABLE
     Route: 065
     Dates: start: 20220706, end: 20220907
  2. FEMARA [Concomitant]
     Active Substance: LETROZOLE

REACTIONS (2)
  - Erysipelas [Recovering/Resolving]
  - Bursitis [Recovering/Resolving]

NARRATIVE: CASE EVENT DATE: 20220819
